FAERS Safety Report 9490774 (Version 1)
Quarter: 2013Q3

REPORT INFORMATION
  Report Type: Spontaneous
  Country: US (occurrence: US)
  Receive Date: 20130830
  Receipt Date: 20130830
  Transmission Date: 20140515
  Serious: No
  Sender: FDA-Public Use
  Company Number: US-BAYER-2013-104046

PATIENT
  Sex: Male

DRUGS (1)
  1. MIRENA [Suspect]
     Dosage: UNK
     Route: 003

REACTIONS (4)
  - Penile pain [None]
  - Painful ejaculation [None]
  - Dysuria [None]
  - Chromaturia [None]
